FAERS Safety Report 9760263 (Version 2)
Quarter: 2015Q3

REPORT INFORMATION
  Report Type: Spontaneous
  Country: US (occurrence: US)
  Receive Date: 20131216
  Receipt Date: 20150806
  Transmission Date: 20151125
  Serious: No
  Sender: FDA-Public Use
  Company Number: US-GILEAD-2010-0028847

PATIENT
  Age: 65 Year
  Sex: Female

DRUGS (10)
  1. NITROGLYCER DIS [Concomitant]
  2. DIGOXIN. [Concomitant]
     Active Substance: DIGOXIN
  3. ALBUTEROL. [Concomitant]
     Active Substance: ALBUTEROL
  4. THEOPHYLLINE [Concomitant]
     Active Substance: THEOPHYLLINE ANHYDROUS
  5. DILTIAZEM [Concomitant]
     Active Substance: DILTIAZEM
  6. MEGESTROL AC [Concomitant]
  7. ADVAIR DISKUS [Concomitant]
     Active Substance: FLUTICASONE PROPIONATE\SALMETEROL XINAFOATE
  8. ATROVENT [Concomitant]
     Active Substance: IPRATROPIUM BROMIDE
  9. SINGULAIR [Concomitant]
     Active Substance: MONTELUKAST SODIUM
  10. LETAIRIS [Suspect]
     Active Substance: AMBRISENTAN
     Indication: PULMONARY ARTERIAL HYPERTENSION
     Route: 048
     Dates: start: 20100420

REACTIONS (1)
  - Nausea [Recovered/Resolved]

NARRATIVE: CASE EVENT DATE: 20100422
